FAERS Safety Report 24239702 (Version 1)
Quarter: 2024Q3

REPORT INFORMATION
  Report Type: Spontaneous
  Country: US (occurrence: US)
  Receive Date: 20240822
  Receipt Date: 20240822
  Transmission Date: 20241017
  Serious: No
  Sender: AVADEL CNS PHARMA
  Company Number: US-AVADEL CNS PHARMACEUTICALS, LLC-2024AVA00892

PATIENT
  Sex: Female

DRUGS (4)
  1. LUMRYZ [Suspect]
     Active Substance: SODIUM OXYBATE
     Indication: Narcolepsy
     Dosage: 6 G, ONCE NIGHTLY
     Dates: start: 2024, end: 20240520
  2. LUMRYZ [Suspect]
     Active Substance: SODIUM OXYBATE
     Indication: Somnolence
  3. LUMRYZ [Suspect]
     Active Substance: SODIUM OXYBATE
     Indication: Myalgia
  4. LUMRYZ [Suspect]
     Active Substance: SODIUM OXYBATE
     Indication: Insomnia

REACTIONS (18)
  - Energy increased [Recovering/Resolving]
  - Obsessive-compulsive disorder [Recovering/Resolving]
  - Tachyphrenia [Recovering/Resolving]
  - Feeling abnormal [Recovering/Resolving]
  - Initial insomnia [Recovering/Resolving]
  - Retching [Unknown]
  - Hunger [Unknown]
  - Insomnia [Not Recovered/Not Resolved]
  - Sleep disorder [Not Recovered/Not Resolved]
  - Change in sustained attention [Recovering/Resolving]
  - Poor quality sleep [Not Recovered/Not Resolved]
  - Self-induced vomiting [Recovering/Resolving]
  - Nausea [Recovering/Resolving]
  - Vomiting [Recovering/Resolving]
  - Therapeutic product effect incomplete [Recovered/Resolved]
  - Pain [Recovering/Resolving]
  - Dizziness [Unknown]
  - Wrong technique in product usage process [Recovered/Resolved]

NARRATIVE: CASE EVENT DATE: 20240101
